FAERS Safety Report 8252447-3 (Version None)
Quarter: 2012Q2

REPORT INFORMATION
  Report Type: 
  Country: None (occurrence: None)
  Receive Date: 20120402
  Receipt Date: 20110712
  Transmission Date: 20120825
  Serious: No
  Sender: FDA-Public Use
  Company Number: US-ABBOTT-11P-163-0839395-00

PATIENT
  Sex: Male
  Weight: 88.076 kg

DRUGS (3)
  1. ANDROGEL [Suspect]
     Indication: LOSS OF LIBIDO
  2. ANDROGEL [Suspect]
     Indication: DRUG ABUSE
  3. ANDROGEL [Suspect]
     Indication: BLOOD TESTOSTERONE DECREASED
     Dosage: PUMP 4 ACTUATIONS DAILY
     Dates: start: 20050101, end: 20110701

REACTIONS (4)
  - SPERM CONCENTRATION DECREASED [None]
  - LOSS OF LIBIDO [None]
  - INFERTILITY MALE [None]
  - INFERTILITY [None]
